FAERS Safety Report 10383224 (Version 3)
Quarter: 2017Q4

REPORT INFORMATION
  Report Type: Spontaneous
  Country: CA (occurrence: CA)
  Receive Date: 20140813
  Receipt Date: 20171101
  Transmission Date: 20180320
  Serious: Yes (Other)
  Sender: FDA-Public Use
  Company Number: CA-AMGEN-CANSP2014060897

PATIENT
  Age: 72 Year
  Sex: Female

DRUGS (2)
  1. METHOTREXATE. [Suspect]
     Active Substance: METHOTREXATE
     Indication: PRODUCT USED FOR UNKNOWN INDICATION
     Dosage: UNK
     Route: 065
  2. ENBREL [Suspect]
     Active Substance: ETANERCEPT
     Indication: PRODUCT USED FOR UNKNOWN INDICATION
     Dosage: UNK
     Route: 058

REACTIONS (6)
  - Pharyngeal ulceration [Recovered/Resolved]
  - Dysphagia [Recovered/Resolved]
  - Abdominal discomfort [Recovered/Resolved]
  - Nasal ulcer [Recovered/Resolved]
  - Adverse drug reaction [Recovered/Resolved]
  - Sleep disorder [Recovered/Resolved]
